FAERS Safety Report 8285859-2 (Version None)
Quarter: 2012Q2

REPORT INFORMATION
  Report Type: 
  Country: None (occurrence: None)
  Receive Date: 20120413
  Receipt Date: 20120403
  Transmission Date: 20120825
  Serious: Yes (Hospitalization)
  Sender: FDA-Public Use
  Company Number: JP-ELI_LILLY_AND_COMPANY-JP201111009132

PATIENT
  Age: 75 Year
  Sex: Female

DRUGS (1)
  1. FORTEO [Suspect]
     Dosage: UNK
     Route: 058
     Dates: start: 20111125

REACTIONS (6)
  - SPINAL COMPRESSION FRACTURE [None]
  - MYALGIA [None]
  - DIZZINESS [None]
  - MUSCULOSKELETAL CHEST PAIN [None]
  - DRUG INEFFECTIVE [None]
  - DECREASED APPETITE [None]
